FAERS Safety Report 24272716 (Version 1)
Quarter: 2024Q3

REPORT INFORMATION
  Report Type: Report from Study
  Country: PK (occurrence: PK)
  Receive Date: 20240902
  Receipt Date: 20240902
  Transmission Date: 20241016
  Serious: Yes (Death)
  Sender: ROCHE
  Company Number: PK-ROCHE-10000063218

PATIENT
  Age: 74 Year

DRUGS (1)
  1. RITUXIMAB [Suspect]
     Active Substance: RITUXIMAB
     Indication: Rheumatoid arthritis
     Route: 042
     Dates: start: 20240810

REACTIONS (2)
  - Intercepted product prescribing error [Unknown]
  - Hypotension [Fatal]

NARRATIVE: CASE EVENT DATE: 20240825
